FAERS Safety Report 6944379-5 (Version None)
Quarter: 2010Q3

REPORT INFORMATION
  Report Type: 
  Country: None (occurrence: None)
  Receive Date: 20100827
  Receipt Date: 20100819
  Transmission Date: 20110219
  Serious: Yes (Hospitalization)
  Sender: FDA-Public Use
  Company Number: US-US-EMD SERONO, INC.-7011725

PATIENT
  Sex: Male
  Weight: 77 kg

DRUGS (2)
  1. REBIF [Suspect]
     Indication: PRODUCT USED FOR UNKNOWN INDICATION
     Route: 058
     Dates: start: 20070112, end: 20090627
  2. REBIF [Suspect]
     Route: 058
     Dates: start: 20100729

REACTIONS (3)
  - ARTERIAL OCCLUSIVE DISEASE [None]
  - MOUTH HAEMORRHAGE [None]
  - STENT PLACEMENT [None]
